FAERS Safety Report 6993026-5 (Version None)
Quarter: 2010Q3

REPORT INFORMATION
  Report Type: 
  Country: None (occurrence: None)
  Receive Date: 20100917
  Receipt Date: 20100906
  Transmission Date: 20110219
  Serious: Yes (Other)
  Sender: FDA-Public Use
  Company Number: AU-WYE-G06629110

PATIENT
  Sex: Female

DRUGS (1)
  1. EFFEXOR XR [Suspect]
     Dosage: 225MG FOR AROUND 7 YEARS, REDUCED TO 187.5MG ON THE 28-AUG-2010

REACTIONS (12)
  - ANXIETY [None]
  - BRUXISM [None]
  - CONDITION AGGRAVATED [None]
  - DRUG WITHDRAWAL SYNDROME [None]
  - DYSKINESIA [None]
  - IRRITABILITY [None]
  - MALAISE [None]
  - PARAESTHESIA [None]
  - RESTLESSNESS [None]
  - TEARFULNESS [None]
  - TONGUE DISORDER [None]
  - TREMOR [None]
